FAERS Safety Report 6892610-7 (Version None)
Quarter: 2010Q3

REPORT INFORMATION
  Report Type: 
  Country: None (occurrence: None)
  Receive Date: 20100731
  Receipt Date: 20080802
  Transmission Date: 20110219
  Serious: No
  Sender: FDA-Public Use
  Company Number: US-PFIZER INC-2008020948

PATIENT
  Sex: Male

DRUGS (4)
  1. NEURONTIN [Suspect]
     Dates: start: 20080213, end: 20080301
  2. LIPITOR [Concomitant]
  3. XANAX [Concomitant]
  4. AMBIEN [Concomitant]

REACTIONS (1)
  - DRUG INEFFECTIVE [None]
